FAERS Safety Report 22637908 (Version 1)
Quarter: 2023Q2

REPORT INFORMATION
  Report Type: Report from Study
  Country: GB (occurrence: GB)
  Receive Date: 20230626
  Receipt Date: 20230626
  Transmission Date: 20230721
  Serious: Yes (Hospitalization, Other)
  Sender: FDA-Public Use
  Company Number: GB-JNJFOC-20230445691

PATIENT
  Age: 76 Year
  Sex: Male

DRUGS (5)
  1. ZOLEDRONIC ACID [Suspect]
     Active Substance: ZOLEDRONIC ACID
     Indication: Osteoporosis prophylaxis
     Dosage: UNK
     Route: 042
     Dates: start: 20230602
  2. APALUTAMIDE [Suspect]
     Active Substance: APALUTAMIDE
     Indication: Prostate cancer
     Dosage: 180 MG (1 TIME EVERY .33 DAYS)
     Route: 048
     Dates: start: 20230331
  3. APALUTAMIDE [Suspect]
     Active Substance: APALUTAMIDE
     Dosage: 120 MG (1 TIME EVERY .5 DAYS, )
     Route: 048
  4. APALUTAMIDE [Suspect]
     Active Substance: APALUTAMIDE
     Dosage: 240 MG, QD
     Route: 048
     Dates: start: 20230331, end: 20230607
  5. BISOPROLOL [Concomitant]
     Active Substance: BISOPROLOL
     Indication: Hypertension
     Dosage: UNK
     Route: 048

REACTIONS (11)
  - Swelling face [Not Recovered/Not Resolved]
  - Eyelid ptosis [Not Recovered/Not Resolved]
  - Migraine [Not Recovered/Not Resolved]
  - Defaecation urgency [Recovered/Resolved]
  - Ageusia [Not Recovered/Not Resolved]
  - Nervousness [Unknown]
  - Bone pain [Unknown]
  - Rash erythematous [Not Recovered/Not Resolved]
  - Arthralgia [Not Recovered/Not Resolved]
  - Hot flush [Recovering/Resolving]
  - Off label use [Unknown]

NARRATIVE: CASE EVENT DATE: 20230331
